FAERS Safety Report 6853008-0 (Version None)
Quarter: 2010Q3

REPORT INFORMATION
  Report Type: 
  Country: None (occurrence: None)
  Receive Date: 20100717
  Receipt Date: 20071128
  Transmission Date: 20110219
  Serious: No
  Sender: FDA-Public Use
  Company Number: US-PFIZER INC-2007102018

PATIENT
  Sex: Female

DRUGS (11)
  1. CHANTIX [Suspect]
     Indication: SMOKING CESSATION THERAPY
     Route: 048
     Dates: start: 20071001
  2. ALL OTHER THERAPEUTIC PRODUCTS [Concomitant]
  3. REMERON [Concomitant]
  4. BENICAR [Concomitant]
  5. CLARITIN [Concomitant]
  6. ATIVAN [Concomitant]
  7. IMITREX [Concomitant]
  8. ADVAIR DISKUS 100/50 [Concomitant]
  9. ALBUTEROL [Concomitant]
  10. TOPAMAX [Concomitant]
  11. FIORICET [Concomitant]

REACTIONS (1)
  - DRUG INEFFECTIVE [None]
